FAERS Safety Report 5568590-3 (Version None)
Quarter: 2007Q4

REPORT INFORMATION
  Report Type: 
  Country: None (occurrence: None)
  Receive Date: 20071130
  Receipt Date: 20070116
  Transmission Date: 20080405
  Serious: Yes (Other)
  Sender: FDA-Public Use
  Company Number: WAES 0606USA05121

PATIENT
  Age: 66 Year
  Sex: Female
  Weight: 81.6475 kg

DRUGS (3)
  1. FOSAMAX [Suspect]
     Indication: OSTEOPOROSIS
     Dosage: 70 MG WKY PO
     Route: 048
     Dates: start: 20030617, end: 20050101
  2. ANTINEOPLASTIC (UNSPECIFIED) [Concomitant]
  3. CORTICOSTEROIDS (UNSPECIFIED) [Concomitant]

REACTIONS (1)
  - OSTEONECROSIS [None]
